FAERS Safety Report 13780672 (Version 2)
Quarter: 2017Q4

REPORT INFORMATION
  Report Type: Spontaneous
  Country: US (occurrence: US)
  Receive Date: 20170724
  Receipt Date: 20171030
  Transmission Date: 20180320
  Serious: Yes (Hospitalization)
  Sender: FDA-Public Use
  Company Number: US-PFIZER INC-2017316614

PATIENT
  Age: 49 Year
  Sex: Female

DRUGS (1)
  1. XELJANZ XR [Suspect]
     Active Substance: TOFACITINIB CITRATE
     Indication: C-REACTIVE PROTEIN ABNORMAL
     Dosage: 11 MG, UNK

REACTIONS (7)
  - Drug ineffective [Unknown]
  - Red blood cell sedimentation rate increased [Unknown]
  - Peripheral swelling [Unknown]
  - Nausea [Recovering/Resolving]
  - Oedema [Unknown]
  - Pain in extremity [Unknown]
  - Vomiting [Recovering/Resolving]
